FAERS Safety Report 4359049-X (Version None)
Quarter: 2004Q2

REPORT INFORMATION
  Report Type: 
  Country: None (occurrence: None)
  Receive Date: 20040517
  Receipt Date: 20040407
  Transmission Date: 20050107
  Serious: Yes (Hospitalization)
  Sender: FDA-Public Use
  Company Number: AT-AMGEN-UK071906

PATIENT
  Sex: Female

DRUGS (12)
  1. NEULASTA [Suspect]
     Indication: CHEMOTHERAPY
     Route: 065
     Dates: start: 20040225
  2. CYCLOPHOSPHAMIDE [Concomitant]
     Route: 042
     Dates: start: 20040201
  3. PREDNISOLONE [Concomitant]
     Route: 048
     Dates: start: 20040201
  4. METHOTREXATE [Concomitant]
     Route: 042
     Dates: start: 20040219
  5. DEXAMETHASONE [Concomitant]
     Route: 048
     Dates: start: 20040219
  6. VINCRISTINE [Concomitant]
     Route: 042
     Dates: start: 20040219
  7. CYTARABINE [Concomitant]
     Route: 042
     Dates: start: 20040219
  8. TENIPOSIDE [Concomitant]
     Dates: start: 20040219
  9. ADRIAMYCIN PFS [Concomitant]
     Route: 042
     Dates: start: 20040310
  10. LEUCOVORIN CALCIUM [Concomitant]
     Dates: start: 20040201
  11. MESNA [Concomitant]
     Dates: start: 20040201
  12. IFOSFAMIDE [Concomitant]
     Route: 042
     Dates: start: 20040219

REACTIONS (7)
  - APLASIA [None]
  - DIARRHOEA HAEMORRHAGIC [None]
  - FEBRILE NEUTROPENIA [None]
  - INFLAMMATION [None]
  - MUCOSAL INFLAMMATION [None]
  - MYELODYSPLASTIC SYNDROME [None]
  - PAIN [None]
